FAERS Safety Report 8568989-7 (Version None)
Quarter: 2012Q3

REPORT INFORMATION
  Report Type: 
  Country: None (occurrence: None)
  Receive Date: 20120803
  Receipt Date: 20120417
  Transmission Date: 20120928
  Serious: No
  Sender: FDA-Public Use
  Company Number: US-ABBOTT-12P-163-0926698-00

PATIENT
  Sex: Female

DRUGS (4)
  1. NIASPAN [Suspect]
     Dates: start: 20110401
  2. ZOCOR [Concomitant]
     Indication: PRODUCT USED FOR UNKNOWN INDICATION
  3. ASPIRIN [Concomitant]
     Indication: PRODUCT USED FOR UNKNOWN INDICATION
  4. NIASPAN [Suspect]
     Indication: HIGH DENSITY LIPOPROTEIN DECREASED
     Dosage: Q HS
     Dates: start: 20111101

REACTIONS (5)
  - MUSCULOSKELETAL PAIN [None]
  - ARTHRALGIA [None]
  - BLOOD GLUCOSE INCREASED [None]
  - COUGH [None]
  - FLUSHING [None]
